FAERS Safety Report 10783612 (Version 2)
Quarter: 2015Q1

REPORT INFORMATION
  Report Type: Spontaneous
  Country: DE (occurrence: DE)
  Receive Date: 20150210
  Receipt Date: 20150216
  Transmission Date: 20150721
  Serious: Yes (Other)
  Sender: FDA-Public Use
  Company Number: ALCN2015DE000690

PATIENT
  Age: 80 Year
  Sex: Female
  Weight: 50 kg

DRUGS (5)
  1. AZOPT [Suspect]
     Active Substance: BRINZOLAMIDE
     Dosage: 1 GTT, BID (MORNING AND NIGHT)
     Route: 047
  2. METOHEXAL [Suspect]
     Active Substance: METOPROLOL SUCCINATE
     Dosage: 0.5 DF, QD (MORNING)
  3. DIGIMERCK [Suspect]
     Active Substance: DIGITOXIN
     Dosage: 1 DF, QD (MORNING)
  4. TRAVATAN [Suspect]
     Active Substance: TRAVOPROST
     Indication: VISUAL FIELD DEFECT
     Dosage: 1 GTT, QD (NIGHT)
     Route: 047
  5. RAMILICH [Suspect]
     Active Substance: RAMIPRIL
     Dosage: 1 DF, QD (MORNING)

REACTIONS (2)
  - Heart rate irregular [Unknown]
  - Hypertension [Unknown]
